FAERS Safety Report 9216914 (Version 1)
Quarter: 2013Q2

REPORT INFORMATION
  Report Type: Spontaneous
  Country: US (occurrence: US)
  Receive Date: 20130408
  Receipt Date: 20130408
  Transmission Date: 20140414
  Serious: Yes (Hospitalization)
  Sender: FDA-Public Use
  Company Number: US-GLAXOSMITHKLINE-A1006075A

PATIENT
  Age: 36 Year
  Sex: Male

DRUGS (1)
  1. POTIGA [Suspect]
     Indication: EPILEPSY
     Route: 048
     Dates: start: 20121011

REACTIONS (1)
  - Urinary retention [Recovered/Resolved]
